FAERS Safety Report 7050214-X (Version None)
Quarter: 2010Q4

REPORT INFORMATION
  Report Type: 
  Country: None (occurrence: None)
  Receive Date: 20101013
  Receipt Date: 20100929
  Transmission Date: 20110411
  Serious: Yes (Life-Threatening)
  Sender: FDA-Public Use
  Company Number: IDA-00439

PATIENT
  Age: 77 Year
  Sex: Female

DRUGS (3)
  1. INDERAL [Suspect]
     Indication: TREMOR
     Dosage: ORAL FORMULATION: TABLETS
     Route: 048
     Dates: start: 20100815, end: 20100919
  2. QUILNORM RETARD (LITHIUM CARBONATE) [Concomitant]
  3. SEROQUEL [Concomitant]

REACTIONS (2)
  - FATIGUE [None]
  - HEART RATE DECREASED [None]
